FAERS Safety Report 11988224 (Version 1)
Quarter: 2016Q1

REPORT INFORMATION
  Report Type: Spontaneous
  Country: US (occurrence: US)
  Receive Date: 20160202
  Receipt Date: 20160202
  Transmission Date: 20160526
  Serious: No
  Sender: FDA-Public Use
  Company Number: US-009507513-1602USA000383

PATIENT
  Sex: Male

DRUGS (1)
  1. JANUVIA [Suspect]
     Active Substance: SITAGLIPTIN PHOSPHATE
     Indication: DIABETES MELLITUS
     Dosage: UNK
     Route: 048

REACTIONS (5)
  - Poor quality sleep [Recovered/Resolved]
  - Toothache [Recovered/Resolved]
  - Pain [Recovered/Resolved]
  - Skin burning sensation [Recovered/Resolved]
  - Diarrhoea [Recovered/Resolved]
